FAERS Safety Report 6454121-2 (Version None)
Quarter: 2009Q4

REPORT INFORMATION
  Report Type: 
  Country: None (occurrence: None)
  Receive Date: 20091124
  Receipt Date: 20091118
  Transmission Date: 20100525
  Serious: Yes (Other)
  Sender: FDA-Public Use
  Company Number: US-MERCK-0911USA03100

PATIENT
  Age: 47 Year
  Sex: Male

DRUGS (2)
  1. JANUVIA [Suspect]
     Indication: DIABETES MELLITUS
     Route: 048
  2. METFORMIN [Concomitant]
     Route: 065

REACTIONS (5)
  - AGITATION [None]
  - CARDIAC FAILURE CONGESTIVE [None]
  - LIP BLISTER [None]
  - LIP EXFOLIATION [None]
  - SLEEP DISORDER [None]
